FAERS Safety Report 8192861-8 (Version None)
Quarter: 2012Q1

REPORT INFORMATION
  Report Type: 
  Country: None (occurrence: None)
  Receive Date: 20120308
  Receipt Date: 20120228
  Transmission Date: 20120608
  Serious: Yes (Other)
  Sender: FDA-Public Use
  Company Number: FR-JNJFOC-20120300299

PATIENT
  Age: 14 Year
  Sex: Female

DRUGS (5)
  1. REMICADE [Suspect]
     Route: 042
     Dates: start: 20100929
  2. REMICADE [Suspect]
     Route: 042
     Dates: start: 20100901
  3. IMURAN [Suspect]
     Route: 048
     Dates: start: 20111001
  4. REMICADE [Suspect]
     Indication: CROHN'S DISEASE
     Route: 042
     Dates: start: 20100820
  5. IMURAN [Suspect]
     Indication: CROHN'S DISEASE
     Dosage: 100 MG/DAY
     Route: 048
     Dates: start: 20100801

REACTIONS (1)
  - PSEUDOLYMPHOMA [None]
